FAERS Safety Report 4321234-0 (Version None)
Quarter: 2004Q1

REPORT INFORMATION
  Report Type: 
  Country: None (occurrence: None)
  Receive Date: 20040322
  Receipt Date: 20040322
  Transmission Date: 20041129
  Serious: Yes (Death)
  Sender: FDA-Public Use
  Company Number: None

PATIENT
  Age: 89 Year
  Sex: Male
  Weight: 62.5964 kg

DRUGS (1)
  1. ZYPREXA [Suspect]

REACTIONS (5)
  - AGGRESSION [None]
  - COGNITIVE DISORDER [None]
  - INCOHERENT [None]
  - MUSCLE RIGIDITY [None]
  - TREMOR [None]
